FAERS Safety Report 9254915 (Version 2)
Quarter: 2013Q2

REPORT INFORMATION
  Report Type: Spontaneous
  Country: US (occurrence: US)
  Receive Date: 20130425
  Receipt Date: 20130527
  Transmission Date: 20140414
  Serious: No
  Sender: FDA-Public Use
  Company Number: US-009507513-1304USA013813

PATIENT
  Sex: Female

DRUGS (1)
  1. NASONEX [Suspect]
     Indication: HYPERSENSITIVITY
     Dosage: 1 STANDARD DOSE OF 17, 4 SPRAYS DAILY
     Route: 055
     Dates: start: 20121011

REACTIONS (2)
  - Nasal discomfort [Unknown]
  - Product quality issue [Not Recovered/Not Resolved]
